FAERS Safety Report 25571605 (Version 1)
Quarter: 2025Q3

REPORT INFORMATION
  Report Type: Spontaneous
  Country: US (occurrence: US)
  Receive Date: 20250717
  Receipt Date: 20250717
  Transmission Date: 20251021
  Serious: No
  Sender: BIOGEN
  Company Number: US-BIOGEN-2025BI01317250

PATIENT
  Age: 30 Year
  Sex: Female

DRUGS (1)
  1. TYSABRI [Suspect]
     Active Substance: NATALIZUMAB
     Indication: Multiple sclerosis
     Route: 050
     Dates: start: 20250711

REACTIONS (3)
  - Migraine [Unknown]
  - Abdominal discomfort [Unknown]
  - Fatigue [Unknown]

NARRATIVE: CASE EVENT DATE: 20250701
